FAERS Safety Report 5850316-7 (Version None)
Quarter: 2008Q3

REPORT INFORMATION
  Report Type: 
  Country: None (occurrence: None)
  Receive Date: 20080819
  Receipt Date: 20080815
  Transmission Date: 20090109
  Serious: Yes (Death)
  Sender: FDA-Public Use
  Company Number: US-GILEAD-2008-0017741

PATIENT
  Sex: Male
  Weight: 68.1 kg

DRUGS (11)
  1. LETAIRIS [Suspect]
     Indication: PULMONARY ARTERIAL HYPERTENSION
     Route: 048
     Dates: start: 20080717
  2. TAZTIA XT [Concomitant]
     Route: 048
  3. FUROSEMIDE [Concomitant]
     Route: 048
  4. ASPIRIN [Concomitant]
     Route: 048
  5. OXYGEN [Concomitant]
     Route: 055
  6. DIGOXIN [Concomitant]
     Route: 048
  7. PROTONIX [Concomitant]
     Route: 048
  8. LEVOXYL [Concomitant]
     Route: 048
  9. FOLIC ACID [Concomitant]
     Route: 048
  10. MULTI-VITAMIN [Concomitant]
     Route: 048
  11. POTASSIUM CHLORIDE [Concomitant]
     Route: 048

REACTIONS (1)
  - DEATH [None]
